FAERS Safety Report 6346550-2 (Version None)
Quarter: 2009Q3

REPORT INFORMATION
  Report Type: 
  Country: None (occurrence: None)
  Receive Date: 20090909
  Receipt Date: 20090908
  Transmission Date: 20100115
  Serious: Yes (Other)
  Sender: FDA-Public Use
  Company Number: DE-RB-020256-09

PATIENT
  Sex: Male

DRUGS (2)
  1. BUPRENORPHINE HYDROCHLORIDE [Suspect]
     Indication: DRUG THERAPY
     Route: 065
  2. STRATTERA [Suspect]
     Dosage: DOSING INFORMATION UNKNOWN.
     Route: 065

REACTIONS (2)
  - SUICIDAL IDEATION [None]
  - TACHYCARDIA [None]
